FAERS Safety Report 22150918 (Version 1)
Quarter: 2023Q1

REPORT INFORMATION
  Report Type: Spontaneous
  Country: US (occurrence: US)
  Receive Date: 20230329
  Receipt Date: 20230329
  Transmission Date: 20230417
  Serious: Yes (Other)
  Sender: FDA-Public Use
  Company Number: US-PADAGIS-2023PAD00392

PATIENT

DRUGS (14)
  1. BUDESONIDE [Suspect]
     Active Substance: BUDESONIDE
     Indication: Biliary cirrhosis
     Dosage: UNK
     Route: 065
  2. BUDESONIDE [Suspect]
     Active Substance: BUDESONIDE
     Indication: Tubulointerstitial nephritis
  3. MYCOPHENOLATE MOFETIL [Suspect]
     Active Substance: MYCOPHENOLATE MOFETIL
     Indication: Biliary cirrhosis
     Dosage: UNK
     Route: 065
  4. MYCOPHENOLATE MOFETIL [Suspect]
     Active Substance: MYCOPHENOLATE MOFETIL
     Indication: Tubulointerstitial nephritis
  5. RAPAMYCIN [Suspect]
     Active Substance: SIROLIMUS
     Indication: Biliary cirrhosis
     Dosage: UNK
     Route: 065
  6. RAPAMYCIN [Suspect]
     Active Substance: SIROLIMUS
     Indication: Tubulointerstitial nephritis
  7. URSODIOL [Suspect]
     Active Substance: URSODIOL
     Indication: Biliary cirrhosis
     Dosage: UNK
     Route: 065
  8. URSODIOL [Suspect]
     Active Substance: URSODIOL
     Indication: Tubulointerstitial nephritis
  9. SEMAGLUTIDE [Concomitant]
     Active Substance: SEMAGLUTIDE
     Indication: Type 2 diabetes mellitus
     Dosage: 3 MG, QD
     Route: 048
     Dates: start: 201912
  10. SEMAGLUTIDE [Concomitant]
     Active Substance: SEMAGLUTIDE
     Dosage: 7 MG ONCE DAILY AFTER 1 MONTH
     Route: 048
  11. PITAVASTATIN [Concomitant]
     Active Substance: PITAVASTATIN
     Indication: Product used for unknown indication
     Dosage: UNK
     Route: 065
  12. LOSARTAN [Concomitant]
     Active Substance: LOSARTAN
     Indication: Product used for unknown indication
     Dosage: UNK
     Route: 065
  13. INSULIN NOS [Concomitant]
     Active Substance: INSULIN NOS
     Indication: Product used for unknown indication
     Dosage: UNK
     Route: 065
  14. IBUPROFEN [Concomitant]
     Active Substance: IBUPROFEN
     Indication: Arthralgia
     Dosage: 400 MG, BID
     Route: 065

REACTIONS (1)
  - Drug ineffective for unapproved indication [Unknown]
